FAERS Safety Report 15721091 (Version 2)
Quarter: 2019Q2

REPORT INFORMATION
  Report Type: Other
  Country: US (occurrence: US)
  Receive Date: 20181214
  Receipt Date: 20190613
  Transmission Date: 20190711
  Serious: Yes (Death, Hospitalization)
  Sender: FDA-Public Use
  Company Number: US-VISTAPHARM, INC.-VER201812-000999

PATIENT
  Sex: Male

DRUGS (14)
  1. CHLORDIAZEPOXIDE. [Concomitant]
     Active Substance: CHLORDIAZEPOXIDE
     Indication: PRODUCT USED FOR UNKNOWN INDICATION
     Dosage: 200 MG: ON CLINICAL DAY 1
  2. HYDROXYZINE [Concomitant]
     Active Substance: HYDROXYZINE HYDROCHLORIDE
     Indication: PRODUCT USED FOR UNKNOWN INDICATION
     Dosage: UNKNOWN
  3. ALPRAZOLAM. [Concomitant]
     Active Substance: ALPRAZOLAM
     Indication: DRUG DEPENDENCE
     Dosage: 2-4 G
     Route: 048
  4. ALCOHOL. [Concomitant]
     Active Substance: ALCOHOL
     Indication: DRUG DEPENDENCE
     Dosage: APPROXIMATELY 12 BEERS AND 1 PINT OF VODKA
     Route: 048
  5. TRAZODONE [Concomitant]
     Active Substance: TRAZODONE HYDROCHLORIDE
     Indication: PRODUCT USED FOR UNKNOWN INDICATION
     Dosage: UNKNOWN
  6. ONDANSETRON [Concomitant]
     Active Substance: ONDANSETRON
     Indication: PRODUCT USED FOR UNKNOWN INDICATION
     Dosage: 4 MG
     Route: 030
  7. HYDROXYZINE [Concomitant]
     Active Substance: HYDROXYZINE HYDROCHLORIDE
     Dosage: 50 MG
  8. TRAZODONE [Concomitant]
     Active Substance: TRAZODONE HYDROCHLORIDE
     Dosage: 50 MG
  9. METHADONE [Suspect]
     Active Substance: METHADONE HYDROCHLORIDE
     Indication: DRUG DETOXIFICATION
     Dosage: 50 MG (20 MG INITIAL DOSE FOLLOWED BY 3 DOSES OF 10 MG ADMINISTERED ORALLY AT 6-8 HOUR INTERVALS): O
  10. METHADONE [Suspect]
     Active Substance: METHADONE HYDROCHLORIDE
     Dosage: 10 MG (MORNING DOSE): ON CLINICAL DAY 3
  11. IBUPROFEN. [Concomitant]
     Active Substance: IBUPROFEN
     Indication: PRODUCT USED FOR UNKNOWN INDICATION
     Dosage: UNKNOWN
  12. NALOXONE [Concomitant]
     Active Substance: NALOXONE
     Indication: PRODUCT USED FOR UNKNOWN INDICATION
     Dosage: 3 DOSES OF 0.4 MG
     Route: 030
  13. HEROIN [Concomitant]
     Active Substance: DIAMORPHINE
     Indication: DRUG DEPENDENCE
     Dosage: BUNDLES
  14. CHLORDIAZEPOXIDE. [Concomitant]
     Active Substance: CHLORDIAZEPOXIDE
     Dosage: 40 MG: ON CLINICAL DAY 2

REACTIONS (3)
  - Sudden death [Fatal]
  - Overdose [Fatal]
  - Hypoglycaemia [Unknown]
